FAERS Safety Report 9114227 (Version 1)
Quarter: 2013Q1

REPORT INFORMATION
  Report Type: Spontaneous
  Country: US (occurrence: US)
  Receive Date: 20130208
  Receipt Date: 20130208
  Transmission Date: 20140127
  Serious: No
  Sender: FDA-Public Use
  Company Number: US-PFIZER INC-2013054566

PATIENT
  Age: 4 Year
  Sex: Female
  Weight: 17 kg

DRUGS (1)
  1. CHILDREN^S MOTRIN [Suspect]
     Indication: PYREXIA
     Dosage: 100 MG, ONCE EVERY 4 HOURS
     Route: 048
     Dates: start: 20130117

REACTIONS (2)
  - Inappropriate schedule of drug administration [Unknown]
  - Drug ineffective [Unknown]
